FAERS Safety Report 7687793-5 (Version None)
Quarter: 2011Q3

REPORT INFORMATION
  Report Type: 
  Country: None (occurrence: None)
  Receive Date: 20110817
  Receipt Date: 20110805
  Transmission Date: 20111222
  Serious: Yes (Hospitalization)
  Sender: FDA-Public Use
  Company Number: US-ELI_LILLY_AND_COMPANY-US201103007042

PATIENT
  Age: 63 Year
  Sex: Female

DRUGS (1)
  1. FORTEO [Suspect]
     Indication: OSTEOPOROSIS
     Dosage: UNK UNK, UNKNOWN
     Route: 065

REACTIONS (5)
  - SPINAL FUSION SURGERY [None]
  - NEURALGIA [None]
  - MUSCLE SPASMS [None]
  - INJECTION SITE HAEMORRHAGE [None]
  - PAIN [None]
